FAERS Safety Report 4661776-1 (Version None)
Quarter: 2005Q2

REPORT INFORMATION
  Report Type: 
  Country: None (occurrence: None)
  Receive Date: 20050512
  Receipt Date: 20050512
  Transmission Date: 20051028
  Serious: No
  Sender: FDA-Public Use
  Company Number: None

PATIENT
  Sex: Female
  Weight: 137.8935 kg

DRUGS (1)
  1. SYNTHROID [Suspect]
     Indication: HYPOTHYROIDISM
     Dosage: 0.150 ONCE A DAY

REACTIONS (3)
  - PHARMACEUTICAL PRODUCT COMPLAINT [None]
  - THERAPEUTIC PRODUCT INEFFECTIVE [None]
  - THYROID FUNCTION TEST ABNORMAL [None]
